FAERS Safety Report 12168115 (Version 1)
Quarter: 2016Q1

REPORT INFORMATION
  Report Type: Spontaneous
  Country: US (occurrence: None)
  Receive Date: 20160309
  Receipt Date: 20160309
  Transmission Date: 20160526
  Serious: No
  Sender: FDA-Public Use
  Company Number: None

PATIENT
  Age: 68 Year
  Sex: Female

DRUGS (9)
  1. AZITHORMYCIN [Concomitant]
  2. VITAMIN C [Concomitant]
     Active Substance: ASCORBIC ACID
  3. CRESTORE [Concomitant]
  4. IBRANCE [Suspect]
     Active Substance: PALBOCICLIB
     Indication: RESPIRATORY DISORDER
     Dosage: 1 CAP DAILY PO
     Route: 048
     Dates: start: 201507
  5. CALC [Concomitant]
  6. ASP [Concomitant]
     Active Substance: ASPIRIN
  7. COQ10 [Concomitant]
     Active Substance: UBIDECARENONE
  8. VITAMIN D [Concomitant]
     Active Substance: CHOLECALCIFEROL
  9. VITAMIN E [Concomitant]
     Active Substance: .ALPHA.-TOCOPHEROL

REACTIONS (2)
  - Hypersensitivity [None]
  - Aphthous ulcer [None]

NARRATIVE: CASE EVENT DATE: 201602
